FAERS Safety Report 22849821 (Version 3)
Quarter: 2023Q4

REPORT INFORMATION
  Report Type: Spontaneous
  Country: US (occurrence: US)
  Receive Date: 20230822
  Receipt Date: 20231108
  Transmission Date: 20240109
  Serious: Yes (Death, Other)
  Sender: FDA-Public Use
  Company Number: US-PFIZER INC-202300277899

PATIENT
  Age: 62 Year
  Sex: Female

DRUGS (4)
  1. VANCOMYCIN HYDROCHLORIDE [Suspect]
     Active Substance: VANCOMYCIN HYDROCHLORIDE
     Indication: Anti-infective therapy
     Dosage: UNK
     Route: 042
  2. CEFEPIME HYDROCHLORIDE [Suspect]
     Active Substance: CEFEPIME HYDROCHLORIDE
     Indication: Anti-infective therapy
     Dosage: UNK
     Route: 042
  3. HYDROCORTISONE [Concomitant]
     Active Substance: HYDROCORTISONE
     Indication: Acute haemolytic transfusion reaction
     Dosage: 100 MG, UNK
  4. OXYGEN [Concomitant]
     Active Substance: OXYGEN
     Indication: Acute haemolytic transfusion reaction
     Dosage: UNK

REACTIONS (7)
  - Drug ineffective [Fatal]
  - Haemolysis [Fatal]
  - Cardiac arrest [Fatal]
  - Shock [Fatal]
  - Dysarthria [Fatal]
  - Tachypnoea [Fatal]
  - Cyanosis [Fatal]
